FAERS Safety Report 6626447-0 (Version None)
Quarter: 2010Q1

REPORT INFORMATION
  Report Type: 
  Country: None (occurrence: None)
  Receive Date: 20100310
  Receipt Date: 20100122
  Transmission Date: 20100710
  Serious: No
  Sender: FDA-Public Use
  Company Number: US-ABBOTT-10P-163-0622285-00

PATIENT
  Sex: Female
  Weight: 113.5 kg

DRUGS (2)
  1. LUPRON DEPOT [Suspect]
     Indication: ENDOMETRIOSIS
     Dates: start: 20091001
  2. LUPRON DEPOT [Suspect]
     Indication: INFERTILITY FEMALE

REACTIONS (1)
  - HERPES ZOSTER [None]
